FAERS Safety Report 4314861-8 (Version None)
Quarter: 2004Q1

REPORT INFORMATION
  Report Type: 
  Country: None (occurrence: None)
  Receive Date: 20040308
  Receipt Date: 20040219
  Transmission Date: 20041129
  Serious: Yes (Hospitalization, Disabling)
  Sender: FDA-Public Use
  Company Number: 6007503

PATIENT
  Sex: Male

DRUGS (1)
  1. ENALAPRIL 10 MG TABLETS (TABLETS) (ENALAPRIL) [Suspect]
     Indication: CARDIAC FAILURE CONGESTIVE
     Dosage: 20 MG (10 MG, 2 IN 1 D) ORAL
     Route: 048
     Dates: start: 20030929

REACTIONS (1)
  - LEG AMPUTATION [None]
